FAERS Safety Report 5626144-4 (Version None)
Quarter: 2008Q1

REPORT INFORMATION
  Report Type: 
  Country: None (occurrence: None)
  Receive Date: 20080213
  Receipt Date: 20080213
  Transmission Date: 20080703
  Serious: Yes (Death)
  Sender: FDA-Public Use
  Company Number: None

PATIENT
  Age: 67 Year
  Sex: Male
  Weight: 50 kg

DRUGS (1)
  1. PLAVIX [Suspect]
     Indication: THROMBOSIS PROPHYLAXIS
     Dosage: 1/8/08 TO DEATH
     Dates: start: 20080108

REACTIONS (1)
  - THROMBOSIS IN DEVICE [None]
